FAERS Safety Report 12964588 (Version 6)
Quarter: 2017Q3

REPORT INFORMATION
  Report Type: Spontaneous
  Country: US (occurrence: US)
  Receive Date: 20161122
  Receipt Date: 20170920
  Transmission Date: 20171127
  Serious: No
  Sender: FDA-Public Use
  Company Number: US-PFIZER INC-2016540069

PATIENT
  Age: 12 Year
  Sex: Female

DRUGS (2)
  1. GENOTROPIN [Suspect]
     Active Substance: SOMATROPIN
     Indication: GROWTH HORMONE DEFICIENCY
     Dosage: 1 MG, UNK
     Dates: start: 20161103
  2. GENOTROPIN [Suspect]
     Active Substance: SOMATROPIN
     Dosage: 5 MG, 1X/DAY
     Dates: start: 201611

REACTIONS (4)
  - Injection site pain [Not Recovered/Not Resolved]
  - Headache [Recovered/Resolved]
  - Dizziness [Recovered/Resolved]
  - Product odour abnormal [Recovered/Resolved]
